FAERS Safety Report 5043839-4 (Version None)
Quarter: 2006Q2

REPORT INFORMATION
  Report Type: 
  Country: None (occurrence: None)
  Receive Date: 20060601
  Receipt Date: 20060303
  Transmission Date: 20061013
  Serious: No
  Sender: FDA-Public Use
  Company Number: US200602003833

PATIENT
  Age: 58 Year
  Sex: Female

DRUGS (2)
  1. CYMBALTA [Suspect]
     Dosage: 90 MG
     Dates: start: 20051130, end: 20060201
  2. COREG [Concomitant]

REACTIONS (2)
  - DRUG INTERACTION [None]
  - HYPOTENSION [None]
